FAERS Safety Report 12743010 (Version 1)
Quarter: 2016Q3

REPORT INFORMATION
  Report Type: Spontaneous
  Country: US (occurrence: US)
  Receive Date: 20160914
  Receipt Date: 20160914
  Transmission Date: 20161109
  Serious: No
  Sender: FDA-Public Use
  Company Number: US-SIGMA-TAU US-2016STPI000184

PATIENT

DRUGS (1)
  1. MATULANE [Suspect]
     Active Substance: PROCARBAZINE HYDROCHLORIDE
     Indication: HODGKIN^S DISEASE
     Dosage: 3 CAPSULES TIMES 4 DAYS, THEN 2 CAPSULES TIMES 3 DAYS
     Route: 048
     Dates: start: 20151211, end: 20160224

REACTIONS (1)
  - Nausea [Unknown]

NARRATIVE: CASE EVENT DATE: 20160224
